FAERS Safety Report 6963669-3 (Version None)
Quarter: 2010Q3

REPORT INFORMATION
  Report Type: 
  Country: None (occurrence: None)
  Receive Date: 20100830
  Receipt Date: 20100810
  Transmission Date: 20110219
  Serious: Yes (Death, Hospitalization)
  Sender: FDA-Public Use
  Company Number: FK0201000330

PATIENT
  Age: 56 Year
  Sex: Female

DRUGS (3)
  1. EPIRUBICIN [Suspect]
     Indication: BREAST CANCER
     Dosage: (80 MG/M2)
     Dates: start: 20090501
  2. DOCETAXEL [Suspect]
     Indication: BREAST CANCER
     Dosage: (80 MG/M2)
     Dates: start: 20090224
  3. GRANULOCYTE COLONY STIMULATING FACTOR [Concomitant]

REACTIONS (12)
  - ALOPECIA [None]
  - ANAEMIA [None]
  - BACTERAEMIA [None]
  - COAGULOPATHY [None]
  - DYSPNOEA [None]
  - HEPATIC FUNCTION ABNORMAL [None]
  - NEUTROPENIA [None]
  - PAIN [None]
  - PRURITUS [None]
  - RENAL IMPAIRMENT [None]
  - THROMBOCYTOPENIA [None]
  - URINARY TRACT OBSTRUCTION [None]
